FAERS Safety Report 7558306-3 (Version None)
Quarter: 2011Q2

REPORT INFORMATION
  Report Type: 
  Country: None (occurrence: None)
  Receive Date: 20110620
  Receipt Date: 20110608
  Transmission Date: 20111010
  Serious: Yes (Other)
  Sender: FDA-Public Use
  Company Number: FR-ELI_LILLY_AND_COMPANY-FR201106002021

PATIENT
  Sex: Male

DRUGS (2)
  1. ALIMTA [Suspect]
     Indication: LUNG ADENOCARCINOMA
     Dosage: 800 MG, UNK
     Route: 042
     Dates: start: 20100401
  2. AVASTIN [Concomitant]
     Indication: LUNG ADENOCARCINOMA
     Dosage: 550 MG, UNK
     Route: 042
     Dates: start: 20110401

REACTIONS (1)
  - PERIPHERAL ISCHAEMIA [None]
